FAERS Safety Report 15675923 (Version 2)
Quarter: 2018Q4

REPORT INFORMATION
  Report Type: Spontaneous
  Country: GB (occurrence: GB)
  Receive Date: 20181130
  Receipt Date: 20181226
  Transmission Date: 20190205
  Serious: Yes (Other)
  Sender: FDA-Public Use
  Company Number: GB-PFIZER INC-2018490040

PATIENT

DRUGS (4)
  1. SERTRALINE HCL [Suspect]
     Active Substance: SERTRALINE HYDROCHLORIDE
     Dosage: 100 UNK, UNK
     Route: 064
     Dates: end: 201810
  2. IRON [Concomitant]
     Active Substance: IRON
  3. SERTRALINE HCL [Suspect]
     Active Substance: SERTRALINE HYDROCHLORIDE
     Indication: ANXIETY
     Dosage: 50 UNK, UNK
     Route: 064
     Dates: start: 201706
  4. CITALOPRAM [Concomitant]
     Active Substance: CITALOPRAM HYDROBROMIDE

REACTIONS (3)
  - Maternal exposure during pregnancy [Unknown]
  - Transverse presentation [Recovered/Resolved]
  - Premature baby [Unknown]
